FAERS Safety Report 19464035 (Version 1)
Quarter: 2021Q2

REPORT INFORMATION
  Report Type: Spontaneous
  Country: DE (occurrence: DE)
  Receive Date: 20210625
  Receipt Date: 20210625
  Transmission Date: 20210717
  Serious: Yes (Other)
  Sender: FDA-Public Use
  Company Number: NVSC2021DE140404

PATIENT
  Age: 57 Year
  Sex: Female

DRUGS (2)
  1. TAMSULOSIN ? 1 A PHARMA 0,4 MG RETARDTABLETTEN [Suspect]
     Active Substance: TAMSULOSIN HYDROCHLORIDE
     Dosage: 0.5 DF
     Route: 065
  2. TAMSULOSIN ? 1 A PHARMA 0,4 MG RETARDTABLETTEN [Suspect]
     Active Substance: TAMSULOSIN HYDROCHLORIDE
     Indication: PRODUCT USED FOR UNKNOWN INDICATION
     Dosage: 1 DF
     Route: 065

REACTIONS (4)
  - Multiple sclerosis [Unknown]
  - Product use issue [Unknown]
  - Urinary retention [Recovering/Resolving]
  - Wrong technique in product usage process [Unknown]
